FAERS Safety Report 5106171-6 (Version None)
Quarter: 2006Q3

REPORT INFORMATION
  Report Type: 
  Country: None (occurrence: None)
  Receive Date: 20060912
  Receipt Date: 20060904
  Transmission Date: 20061208
  Serious: Yes (Death, Other)
  Sender: FDA-Public Use
  Company Number: DE200609000545

PATIENT
  Age: 72 Year
  Sex: Female

DRUGS (9)
  1. ZYPREXA [Suspect]
     Indication: DEPRESSION
     Dosage: SEE IMAGE
     Route: 048
     Dates: start: 20020714, end: 20020722
  2. ZYPREXA [Suspect]
     Indication: DEPRESSION
     Dosage: SEE IMAGE
     Route: 048
     Dates: start: 20020723, end: 20020725
  3. ZYPREXA [Suspect]
     Indication: DEPRESSION
     Dosage: SEE IMAGE
     Route: 048
     Dates: start: 20020726, end: 20020730
  4. AMARYL [Concomitant]
  5. BISOPROLOL FUMARATE [Concomitant]
  6. ATORVASTATIN CALCIUM [Concomitant]
  7. MODURETIC 5-50 [Concomitant]
  8. HALDOL [Concomitant]
  9. CITALOPRAM HYDROBROMIDE [Concomitant]

REACTIONS (2)
  - BLOOD SODIUM DECREASED [None]
  - CARDIAC ARREST [None]
